FAERS Safety Report 9925251 (Version 1)
Quarter: 2014Q1

REPORT INFORMATION
  Report Type: Spontaneous
  Country: US (occurrence: US)
  Receive Date: 20140226
  Receipt Date: 20140226
  Transmission Date: 20141002
  Serious: Yes (Other)
  Sender: FDA-Public Use
  Company Number: US-BRACCO-009816

PATIENT
  Age: 74 Year
  Sex: Male
  Weight: 80 kg

DRUGS (11)
  1. ISOVUE 370 [Suspect]
     Indication: CATHETERISATION CARDIAC
     Route: 042
     Dates: start: 20130826, end: 20130826
  2. BENADRYL [Concomitant]
     Route: 048
     Dates: start: 20130826, end: 20130826
  3. PROTONIX [Concomitant]
  4. PLAVIX [Concomitant]
  5. SOLU-MEDROL [Concomitant]
     Route: 042
     Dates: start: 20130826, end: 20130826
  6. ADALAT [Concomitant]
  7. HYDRALAZINE [Concomitant]
  8. PEPCID [Concomitant]
     Route: 048
     Dates: start: 20130826, end: 20130826
  9. ZETIA [Concomitant]
  10. LIPITOR [Concomitant]
  11. ASPIRIN [Concomitant]

REACTIONS (1)
  - Hypotension [Recovered/Resolved]
